FAERS Safety Report 16893533 (Version 1)
Quarter: 2019Q4

REPORT INFORMATION
  Report Type: Report from Study
  Country: US (occurrence: US)
  Receive Date: 20191008
  Receipt Date: 20191008
  Transmission Date: 20200122
  Serious: Yes (Hospitalization, Other)
  Sender: FDA-Public Use
  Company Number: US-MYLANLABS-2019M1093726

PATIENT
  Age: 44 Year
  Sex: Female

DRUGS (15)
  1. BUPROPION. [Concomitant]
     Active Substance: BUPROPION
  2. SPRIX [Concomitant]
     Active Substance: KETOROLAC TROMETHAMINE
  3. HUMALOG [Concomitant]
     Active Substance: INSULIN LISPRO
  4. ZENPEP [Concomitant]
     Active Substance: PANCRELIPASE AMYLASE\PANCRELIPASE LIPASE\PANCRELIPASE PROTEASE
  5. LISINOPRIL. [Concomitant]
     Active Substance: LISINOPRIL
  6. TOBRAMYCIN. [Suspect]
     Active Substance: TOBRAMYCIN
     Indication: CYSTIC FIBROSIS
     Dosage: 1 DOSAGE FORM (28 DAYS ON/28 DAYS OFF)
     Route: 055
  7. ADVAIR HFA [Concomitant]
     Active Substance: FLUTICASONE PROPIONATE\SALMETEROL XINAFOATE
  8. AZTREONAM LYSINE [Suspect]
     Active Substance: AZTREONAM LYSINE
     Indication: CYSTIC FIBROSIS
     Dosage: 1 DOSAGE FORM (28 DAYS ON/28 DAYS OFF)
     Route: 055
  9. SYMDEKO [Suspect]
     Active Substance: IVACAFTOR\TEZACAFTOR
     Indication: CYSTIC FIBROSIS
     Dosage: 1 DOSAGE FORM, BID (1 YELLOW TABLET IN AM, 1 BLUE TABLET IN PM)
  10. ESOMEPRAZOLE. [Concomitant]
     Active Substance: ESOMEPRAZOLE MAGNESIUM
  11. VENTOLIN [Concomitant]
     Active Substance: ALBUTEROL SULFATE
  12. ALBUTEROL SULFATE. [Concomitant]
     Active Substance: ALBUTEROL SULFATE
  13. SIMVASTATIN. [Concomitant]
     Active Substance: SIMVASTATIN
  14. LANTUS [Concomitant]
     Active Substance: INSULIN GLARGINE
  15. PREDNISONE. [Concomitant]
     Active Substance: PREDNISONE

REACTIONS (2)
  - Infective pulmonary exacerbation of cystic fibrosis [Unknown]
  - Haemoptysis [Unknown]
